FAERS Safety Report 7824621-9 (Version None)
Quarter: 2011Q4

REPORT INFORMATION
  Report Type: 
  Country: None (occurrence: None)
  Receive Date: 20111019
  Receipt Date: 20111005
  Transmission Date: 20120403
  Serious: Yes (Other)
  Sender: FDA-Public Use
  Company Number: US-BAYER-2011-050351

PATIENT
  Age: 39 Year
  Sex: Female
  Weight: 68.027 kg

DRUGS (7)
  1. SERTALINE [Concomitant]
  2. YAZ [Suspect]
     Indication: ACNE
     Dosage: UNK
     Dates: start: 20050101, end: 20100101
  3. ZOLOFT [Concomitant]
  4. YAZ [Suspect]
     Indication: MIGRAINE
  5. YAZ [Suspect]
     Indication: OVARIAN CYST
  6. YAZ [Suspect]
     Indication: PREMENSTRUAL SYNDROME
  7. ROBINUL [Concomitant]
     Dosage: UNK
     Dates: start: 20080910

REACTIONS (8)
  - GALLBLADDER DISORDER [None]
  - PAIN [None]
  - BLOOD CHOLESTEROL INCREASED [None]
  - NEPHROLITHIASIS [None]
  - RENAL INJURY [None]
  - KIDNEY INFECTION [None]
  - INJURY [None]
  - CHOLECYSTITIS CHRONIC [None]
